FAERS Safety Report 20758594 (Version 4)
Quarter: 2023Q1

REPORT INFORMATION
  Report Type: Spontaneous
  Country: ES (occurrence: ES)
  Receive Date: 20220427
  Receipt Date: 20230215
  Transmission Date: 20230418
  Serious: Yes (Hospitalization, Other)
  Sender: FDA-Public Use
  Company Number: ES-GLAXOSMITHKLINE-ES2022GSK055157

PATIENT
  Sex: Male

DRUGS (57)
  1. FLUOXETINE [Interacting]
     Active Substance: FLUOXETINE HYDROCHLORIDE
     Indication: Behaviour disorder
     Dosage: 20 MILLIGRAM, QD
     Route: 065
     Dates: start: 201604, end: 201606
  2. FLUOXETINE [Interacting]
     Active Substance: FLUOXETINE HYDROCHLORIDE
     Indication: Schizoaffective disorder
     Dosage: UNK
     Route: 065
     Dates: start: 201604, end: 201606
  3. FLUOXETINE [Interacting]
     Active Substance: FLUOXETINE HYDROCHLORIDE
     Indication: Schizotypal personality disorder
     Dosage: 20 MILLIGRAM, QD
     Route: 065
     Dates: start: 20160425, end: 20160613
  4. ARIPIPRAZOLE [Interacting]
     Active Substance: ARIPIPRAZOLE
     Indication: Schizoaffective disorder
     Dosage: 400 MILLIGRAM, LONG-ACTING INJECTABLE
     Route: 065
     Dates: start: 201712
  5. ARIPIPRAZOLE [Interacting]
     Active Substance: ARIPIPRAZOLE
     Dosage: 10 MILLIGRAM, QD
     Route: 065
     Dates: start: 201702, end: 201705
  6. LORMETAZEPAM [Interacting]
     Active Substance: LORMETAZEPAM
     Indication: Behaviour disorder
     Dosage: UNK
     Route: 065
     Dates: start: 201604
  7. LORMETAZEPAM [Interacting]
     Active Substance: LORMETAZEPAM
     Indication: Schizoaffective disorder
     Dosage: UNK
     Route: 065
     Dates: start: 20160425, end: 20160613
  8. LORMETAZEPAM [Interacting]
     Active Substance: LORMETAZEPAM
     Dosage: UNK
     Route: 065
     Dates: start: 201702
  9. AMISULPRIDE [Interacting]
     Active Substance: AMISULPRIDE
     Indication: Schizoaffective disorder bipolar type
     Dosage: 400 MILLIGRAM, QD (400 MG, 1D)
     Route: 065
     Dates: start: 1994, end: 201512
  10. AMISULPRIDE [Interacting]
     Active Substance: AMISULPRIDE
     Indication: Schizoaffective disorder
     Dosage: 800 MILLIGRAM, QD (800 MG, 1D)
     Route: 065
     Dates: start: 201512, end: 201604
  11. AMISULPRIDE [Interacting]
     Active Substance: AMISULPRIDE
     Dosage: 600 MILLIGRAM, QD (600 MG, 1D)
     Route: 065
     Dates: start: 201604, end: 201606
  12. AMISULPRIDE [Interacting]
     Active Substance: AMISULPRIDE
     Dosage: 400 MILLIGRAM, QD (400 MG, QD)
     Route: 065
     Dates: start: 201606, end: 201702
  13. LORAZEPAM [Interacting]
     Active Substance: LORAZEPAM
     Indication: Behaviour disorder
     Dosage: UNK
     Route: 065
     Dates: start: 20160425, end: 20161004
  14. LORAZEPAM [Interacting]
     Active Substance: LORAZEPAM
     Indication: Schizoaffective disorder
     Dosage: UNK
     Route: 065
     Dates: start: 201705, end: 201712
  15. QUETIAPINE [Interacting]
     Active Substance: QUETIAPINE
     Indication: Behaviour disorder
     Dosage: 100 MILLIGRAM, QD (100 MG, 1D)
     Route: 065
     Dates: start: 201604, end: 201606
  16. QUETIAPINE [Interacting]
     Active Substance: QUETIAPINE
     Indication: Schizoaffective disorder
     Dosage: 100 MILLIGRAM, QD
     Route: 065
     Dates: start: 20160425, end: 20160613
  17. QUETIAPINE [Interacting]
     Active Substance: QUETIAPINE
     Indication: Schizotypal personality disorder
  18. OLANZAPINE [Interacting]
     Active Substance: OLANZAPINE
     Indication: Schizoaffective disorder
     Dosage: 20 MILLIGRAM, QD (20 MG, QD )
     Route: 048
     Dates: start: 201610, end: 201702
  19. OLANZAPINE [Interacting]
     Active Substance: OLANZAPINE
     Dosage: 20 MILLIGRAM, QD
     Route: 065
     Dates: start: 201610, end: 201702
  20. OLANZAPINE [Interacting]
     Active Substance: OLANZAPINE
     Dosage: 20 MILLIGRAM, QD
     Route: 065
     Dates: start: 201705, end: 201712
  21. OLANZAPINE [Interacting]
     Active Substance: OLANZAPINE
     Dosage: 20 MILLIGRAM, QD
     Route: 048
     Dates: start: 201705, end: 201712
  22. TRAZODONE [Interacting]
     Active Substance: TRAZODONE HYDROCHLORIDE
     Indication: Schizoaffective disorder bipolar type
     Dosage: 200 MG, 1D
     Route: 065
     Dates: start: 1994, end: 201512
  23. TRAZODONE [Interacting]
     Active Substance: TRAZODONE HYDROCHLORIDE
     Indication: Schizoaffective disorder
     Dosage: 200 MILLIGRAM, QD
     Route: 065
     Dates: start: 1994, end: 20160118
  24. TRAZODONE [Interacting]
     Active Substance: TRAZODONE HYDROCHLORIDE
     Dosage: 200 MILLIGRAM, QD
     Route: 065
     Dates: start: 20160613, end: 20161004
  25. TRAZODONE [Interacting]
     Active Substance: TRAZODONE HYDROCHLORIDE
     Dosage: 200 MILLIGRAM, QD
     Route: 065
     Dates: start: 201606, end: 201609
  26. CLOBAZAM [Interacting]
     Active Substance: CLOBAZAM
     Indication: Schizoaffective disorder bipolar type
     Dosage: UNK
     Route: 065
     Dates: start: 1994, end: 20160118
  27. CLOBAZAM [Interacting]
     Active Substance: CLOBAZAM
     Indication: Schizoaffective disorder
  28. CLOBAZAM [Interacting]
     Active Substance: CLOBAZAM
     Indication: Schizotypal personality disorder
  29. ESCITALOPRAM [Interacting]
     Active Substance: ESCITALOPRAM OXALATE
     Indication: Schizoaffective disorder bipolar type
     Dosage: 15 MILLIGRAM, QD (15 MG, 1D)
     Route: 065
     Dates: start: 1994, end: 201512
  30. ESCITALOPRAM [Interacting]
     Active Substance: ESCITALOPRAM OXALATE
     Indication: Schizoaffective disorder
     Dosage: 15 MILLIGRAM, QD
     Route: 065
     Dates: start: 201606, end: 201609
  31. ESCITALOPRAM [Interacting]
     Active Substance: ESCITALOPRAM OXALATE
     Dosage: 20 MILLIGRAM, QD
     Route: 065
     Dates: start: 201702, end: 201705
  32. LITHIUM [Interacting]
     Active Substance: LITHIUM
     Indication: Schizoaffective disorder bipolar type
     Dosage: 800 MILLIGRAM, QD (800 MG, QD)
     Route: 065
     Dates: start: 1994, end: 201512
  33. LITHIUM [Interacting]
     Active Substance: LITHIUM
     Indication: Schizoaffective disorder
     Dosage: 800 MG, 1D
     Route: 065
     Dates: start: 1994, end: 201604
  34. LITHIUM [Interacting]
     Active Substance: LITHIUM
     Indication: Suicide attempt
     Dosage: 600 MILLIGRAM, QD (600 MG, QD)
     Route: 065
     Dates: start: 201702, end: 201705
  35. LITHIUM [Interacting]
     Active Substance: LITHIUM
     Indication: Schizotypal personality disorder
     Dosage: 1200 MILLIGRAM
     Route: 065
     Dates: start: 201712
  36. LITHIUM [Interacting]
     Active Substance: LITHIUM
     Dosage: 800 MILLIGRAM, QD
     Route: 065
     Dates: start: 201604
  37. VALPROATE [Suspect]
     Active Substance: VALPROIC ACID
     Indication: Schizoaffective disorder
     Dosage: 500 MILLIGRAM, QD
     Route: 065
     Dates: start: 201606, end: 201609
  38. VALPROATE [Suspect]
     Active Substance: VALPROIC ACID
     Indication: Schizotypal personality disorder
     Dosage: 1000 MILLIGRAM, QD
     Route: 065
     Dates: start: 201610, end: 201705
  39. LEVOMEPROMAZINE [Suspect]
     Active Substance: LEVOMEPROMAZINE
     Indication: Schizoaffective disorder
     Dosage: 100 MILLIGRAM, QD (100 MG, QD )
     Route: 065
     Dates: start: 201610, end: 201702
  40. LEVOMEPROMAZINE [Suspect]
     Active Substance: LEVOMEPROMAZINE
     Indication: Schizotypal personality disorder
  41. HALOPERIDOL [Suspect]
     Active Substance: HALOPERIDOL
     Indication: Schizoaffective disorder
     Dosage: UNK
     Route: 065
     Dates: start: 201705, end: 201712
  42. HALOPERIDOL [Suspect]
     Active Substance: HALOPERIDOL
     Indication: Mania
  43. LORAZEPAM [Suspect]
     Active Substance: LORAZEPAM
     Indication: Schizoaffective disorder
     Dosage: UNK
     Route: 065
     Dates: start: 201705, end: 201712
  44. LORAZEPAM [Suspect]
     Active Substance: LORAZEPAM
     Dosage: UNK
     Route: 065
     Dates: start: 20160425, end: 20161004
  45. CLONAZEPAM [Suspect]
     Active Substance: CLONAZEPAM
     Indication: Schizoaffective disorder
     Dosage: UNK
     Route: 065
     Dates: start: 201702
  46. AMISULPRIDE [Suspect]
     Active Substance: AMISULPRIDE
     Indication: Schizotypal personality disorder
     Dosage: 400 MILLIGRAM, QD
     Route: 065
     Dates: start: 1994, end: 201512
  47. AMISULPRIDE [Suspect]
     Active Substance: AMISULPRIDE
     Dosage: 800 MILLIGRAM, QD
     Route: 065
     Dates: start: 201512, end: 201604
  48. AMISULPRIDE [Suspect]
     Active Substance: AMISULPRIDE
     Dosage: 600 MILLIGRAM, QD
     Route: 065
     Dates: start: 201606, end: 201606
  49. AMISULPRIDE [Suspect]
     Active Substance: AMISULPRIDE
     Dosage: 400 MILLIGRAM, QD
     Route: 065
     Dates: start: 201606, end: 201702
  50. ESCITALOPRAM [Concomitant]
     Active Substance: ESCITALOPRAM OXALATE
     Indication: Schizotypal personality disorder
     Dosage: 15 MILLIGRAM, QD
     Route: 065
  51. TRAZODONE [Concomitant]
     Active Substance: TRAZODONE HYDROCHLORIDE
     Indication: Schizotypal personality disorder
     Dosage: 200 MILLIGRAM, QD
     Route: 065
  52. LORAZEPAM [Concomitant]
     Active Substance: LORAZEPAM
     Indication: Schizotypal personality disorder
     Dosage: UNK
     Route: 065
  53. LORMETAZEPAM [Concomitant]
     Active Substance: LORMETAZEPAM
     Indication: Schizotypal personality disorder
     Dosage: UNK
     Route: 065
  54. ARIPIPRAZOLE [Concomitant]
     Active Substance: ARIPIPRAZOLE
     Indication: Schizotypal personality disorder
     Dosage: 10 MILLIGRAM, QD
     Route: 065
     Dates: start: 201702, end: 201705
  55. ARIPIPRAZOLE [Concomitant]
     Active Substance: ARIPIPRAZOLE
     Dosage: 400 MILLIGRAM, QD
     Route: 065
     Dates: start: 201712
  56. CLONAZEPAM [Concomitant]
     Active Substance: CLONAZEPAM
     Indication: Schizotypal personality disorder
     Dosage: UNK
     Route: 065
  57. CITALOPRAM [Concomitant]
     Active Substance: CITALOPRAM HYDROBROMIDE
     Indication: Schizotypal personality disorder
     Dosage: UNK
     Route: 065

REACTIONS (25)
  - Deep vein thrombosis [Recovered/Resolved]
  - Depressed mood [Unknown]
  - Mixed delusion [Unknown]
  - Melaena [Recovered/Resolved]
  - Catatonia [Unknown]
  - Mutism [Unknown]
  - Suicide attempt [Unknown]
  - Gastrointestinal haemorrhage [Recovered/Resolved]
  - Agitation [Recovered/Resolved]
  - Hyperprolactinaemia [Unknown]
  - Drug ineffective [Unknown]
  - Intentional overdose [Unknown]
  - Drug level increased [Unknown]
  - Drug interaction [Unknown]
  - Toxicity to various agents [Recovered/Resolved]
  - Sedation [Recovered/Resolved]
  - Extrapyramidal disorder [Unknown]
  - Emotional disorder [Unknown]
  - Sexually inappropriate behaviour [Unknown]
  - Behaviour disorder [Unknown]
  - Condition aggravated [Unknown]
  - Insomnia [Recovered/Resolved]
  - Hypomania [Recovered/Resolved]
  - Sedation complication [Recovered/Resolved]
  - Neurological decompensation [Recovered/Resolved]

NARRATIVE: CASE EVENT DATE: 20160101
